FAERS Safety Report 6771889-6 (Version None)
Quarter: 2010Q2

REPORT INFORMATION
  Report Type: 
  Country: None (occurrence: None)
  Receive Date: 20100616
  Receipt Date: 20100323
  Transmission Date: 20101027
  Serious: No
  Sender: FDA-Public Use
  Company Number: US-ASTRAZENECA-2010SE12778

PATIENT
  Age: 56 Year
  Sex: Female
  Weight: 63.5 kg

DRUGS (4)
  1. ENTOCORT EC [Suspect]
     Indication: CROHN'S DISEASE
     Route: 048
     Dates: start: 20091204, end: 20100301
  2. PROTONIX [Concomitant]
  3. LISINOPRIL [Concomitant]
  4. FLUOXETINE [Concomitant]

REACTIONS (2)
  - DIARRHOEA [None]
  - DRUG DOSE OMISSION [None]
